FAERS Safety Report 5245783-6 (Version None)
Quarter: 2007Q1

REPORT INFORMATION
  Report Type: 
  Country: None (occurrence: None)
  Receive Date: 20070216
  Receipt Date: 20070130
  Transmission Date: 20070707
  Serious: Yes (Other)
  Sender: FDA-Public Use
  Company Number: 2007RL000018

PATIENT
  Age: 73 Year
  Sex: Female
  Weight: 87.5442 kg

DRUGS (6)
  1. OMACOR [Suspect]
     Indication: BLOOD CHOLESTEROL INCREASED
     Dosage: 2 GM;QD;PO
     Route: 048
     Dates: start: 20070116, end: 20070119
  2. ACTOS [Concomitant]
  3. GLYBURIDE [Concomitant]
  4. NORVASC [Concomitant]
  5. METHYLDOPA [Concomitant]
  6. DIOVAN [Concomitant]

REACTIONS (4)
  - CONDITION AGGRAVATED [None]
  - HEADACHE [None]
  - RETINAL HAEMORRHAGE [None]
  - VISUAL ACUITY REDUCED [None]
